FAERS Safety Report 10419852 (Version 1)
Quarter: 2014Q2

REPORT INFORMATION
  Report Type: Spontaneous
  Country: US (occurrence: None)
  Receive Date: 20140627
  Receipt Date: 20140627
  Transmission Date: 20141212
  Serious: Yes (Other)
  Sender: FDA-Public Use
  Company Number: PHEH2014US001149

PATIENT
  Age: 56 Year
  Sex: Female
  Weight: 91.22 kg

DRUGS (16)
  1. DIOVAN HCT (VALSARTAN, HYDROCHLOROTHIAZIDE) UNKNOWN [Suspect]
     Indication: HYPERTENSION
     Dosage: 1 DF (160MG VALS/12.5MG HYDR), DAILY, ORAL
     Route: 048
     Dates: start: 20131017, end: 20140113
  2. HYDROCHLOROTHIAZIDE\VALSARTAN [Suspect]
     Indication: HYPERTENSION
     Dosage: 1 DF, (160 VALS/ 12.5MG HYDR), UNK
     Route: 048
  3. ZOCOR (SIMVASTATIN) [Suspect]
     Indication: TYPE 2 DIABETES MELLITUS
     Dosage: 1 DF (20 MG) DAILY, ORAL
     Route: 048
     Dates: start: 20140109
  4. ASA (ACETYLSALICYLIC ACID) EXTENDED RELEASE TABLET [Concomitant]
  5. METFORMIN [Concomitant]
  6. LASIX (FUROSEMIDE) [Concomitant]
  7. HYDROCODONE [Concomitant]
  8. MULTIVIT/VITAMINS NOS (VITAMOIN NOS) [Concomitant]
  9. CALCIUM [Concomitant]
  10. AMLODIPINE TABLET [Concomitant]
  11. FLONASE (FLUTICASONE PROPIONATE) NASAL SPRAY [Concomitant]
  12. ACETAMINOPHEN W/HYDROCODONE (HYDROCODONE/PARACETAMOL) TABLET [Concomitant]
  13. IBUPROFEN//IBUPROFEN SODIUM TABLET [Concomitant]
  14. MAXALT (RIZTRIPTAN BENOZATE) TABLET [Concomitant]
  15. PHENA//PROMETHAZINE HYDROCHLORIDE [Concomitant]
  16. AZITHROMYCIN TABLET [Concomitant]

REACTIONS (10)
  - Hypertension [None]
  - Nasal inflammation [None]
  - Weight increased [None]
  - Malaise [None]
  - Palpitations [None]
  - Vertigo [None]
  - Nasal congestion [None]
  - Sinus disorder [None]
  - Acute sinusitis [None]
  - Dizziness [None]
